FAERS Safety Report 6136966-1 (Version None)
Quarter: 2009Q1

REPORT INFORMATION
  Report Type: 
  Country: None (occurrence: None)
  Receive Date: 20090330
  Receipt Date: 20090320
  Transmission Date: 20090719
  Serious: Yes (Other)
  Sender: FDA-Public Use
  Company Number: CA-ELI_LILLY_AND_COMPANY-CA200903001034

PATIENT
  Age: 74 Year
  Sex: Female

DRUGS (6)
  1. FORTEO [Suspect]
     Indication: OSTEOPOROSIS
     Dosage: 20 UG, DAILY (1/D)
     Route: 058
     Dates: start: 20081226, end: 20090224
  2. PREMARIN [Concomitant]
     Dosage: 0.3 MG, QOD
  3. ASPIRIN [Concomitant]
     Dosage: 81 MG, QOD
  4. CALCIUM [Concomitant]
     Dosage: 1000 MG, DAILY (1/D)
  5. VITAMIN D [Concomitant]
     Dosage: 2000 IU, DAILY (1/D)
  6. ASCORBIC ACID [Concomitant]

REACTIONS (11)
  - APHASIA [None]
  - CEREBROVASCULAR ACCIDENT [None]
  - FACIAL SPASM [None]
  - FATIGUE [None]
  - FEAR [None]
  - HAND DEFORMITY [None]
  - MALAISE [None]
  - PARAESTHESIA [None]
  - SENSORY DISTURBANCE [None]
  - SKIN DISCOLOURATION [None]
  - TRISMUS [None]
